FAERS Safety Report 18697038 (Version 1)
Quarter: 2021Q1

REPORT INFORMATION
  Report Type: Spontaneous
  Country: US (occurrence: US)
  Receive Date: 20210104
  Receipt Date: 20210104
  Transmission Date: 20210419
  Serious: Yes (Other)
  Sender: FDA-Public Use
  Company Number: US-BAYER-2020-286057

PATIENT

DRUGS (1)
  1. CIPRO [Suspect]
     Active Substance: CIPROFLOXACIN HYDROCHLORIDE
     Dosage: UNK

REACTIONS (24)
  - Visual impairment [None]
  - Temperature intolerance [None]
  - Toxicity to various agents [None]
  - Neuropathy peripheral [None]
  - Panic attack [None]
  - Dizziness [None]
  - Paraesthesia [None]
  - Hypoaesthesia [None]
  - Cardiac disorder [None]
  - Fibromyalgia [None]
  - Insomnia [None]
  - Anxiety [None]
  - Skin disorder [None]
  - Mitochondrial toxicity [None]
  - Feeling abnormal [None]
  - Depression [None]
  - Muscular weakness [None]
  - Joint noise [None]
  - Gastrointestinal disorder [None]
  - Photosensitivity reaction [None]
  - Food allergy [None]
  - Tendon injury [None]
  - Headache [None]
  - Inflammation [None]

NARRATIVE: CASE EVENT DATE: 20201226
